FAERS Safety Report 9850625 (Version 1)
Quarter: 2013Q4

REPORT INFORMATION
  Report Type: Spontaneous
  Country: US (occurrence: None)
  Receive Date: 20131226
  Receipt Date: 20131226
  Transmission Date: 20140711
  Serious: Yes (Other)
  Sender: FDA-Public Use
  Company Number: PHEH2013US007362

PATIENT
  Age: 83 Year
  Sex: Male

DRUGS (9)
  1. DIOVAN (VALSARTAN) [Suspect]
     Indication: BLOOD PRESSURE
  2. FELODIPINE (FELODIPINE) [Concomitant]
  3. TERAZOSIN (TERAZOSIN) [Concomitant]
  4. SIMVASTATIN (SIMVASTATIN) [Concomitant]
  5. FISH OIL (FISH OIL) [Concomitant]
  6. FLAXSEED OIL (LINUM USITATISSIMUM SEED OIL) [Concomitant]
  7. ASPIRIN (ACETYLSALICYLIC ACID) [Concomitant]
  8. CO Q 10 (UBIDECARENONE) [Concomitant]
  9. VITAMIN D (VITAMIN D NOS) [Concomitant]

REACTIONS (1)
  - Blood pressure diastolic increased [None]
